FAERS Safety Report 21786293 (Version 1)
Quarter: 2022Q4

REPORT INFORMATION
  Report Type: Spontaneous
  Country: IT (occurrence: IT)
  Receive Date: 20221228
  Receipt Date: 20221228
  Transmission Date: 20230113
  Serious: Yes (Hospitalization)
  Sender: FDA-Public Use
  Company Number: IT-NATCOUSA-2022-NATCOUSA-000109

PATIENT
  Age: 75 Year
  Sex: Male

DRUGS (4)
  1. ERLOTINIB [Suspect]
     Active Substance: ERLOTINIB
     Indication: Non-small cell lung cancer
  2. LANSOPRAZOLE [Concomitant]
     Active Substance: LANSOPRAZOLE
  3. AMIODARONE [Concomitant]
     Active Substance: AMIODARONE
  4. CLONIDINE [Concomitant]
     Active Substance: CLONIDINE

REACTIONS (3)
  - Ileus paralytic [Unknown]
  - Hyperpyrexia [Unknown]
  - Tachyarrhythmia [Unknown]
